FAERS Safety Report 5601861-0 (Version None)
Quarter: 2008Q1

REPORT INFORMATION
  Report Type: 
  Country: None (occurrence: None)
  Receive Date: 20080124
  Receipt Date: 20080117
  Transmission Date: 20080703
  Serious: Yes (Hospitalization, Other)
  Sender: FDA-Public Use
  Company Number: JP-PFIZER INC-2008005713

PATIENT
  Sex: Female
  Weight: 70 kg

DRUGS (1)
  1. ATARAX [Suspect]
     Indication: SEDATION
     Route: 030
     Dates: start: 20071016, end: 20071017

REACTIONS (2)
  - ABORTION SPONTANEOUS [None]
  - DRUG ADMINISTRATION ERROR [None]
